FAERS Safety Report 5774839-4 (Version None)
Quarter: 2008Q2

REPORT INFORMATION
  Report Type: 
  Country: None (occurrence: None)
  Receive Date: 20080616
  Receipt Date: 20080616
  Transmission Date: 20081010
  Serious: No
  Sender: FDA-Public Use
  Company Number: None

PATIENT
  Sex: Female
  Weight: 113.3993 kg

DRUGS (1)
  1. FEXOFENADINE [Suspect]
     Dosage: 180 QD PO
     Route: 048
     Dates: start: 20060510, end: 20060610

REACTIONS (1)
  - DRUG EFFECT DECREASED [None]
